FAERS Safety Report 5553759-4 (Version None)
Quarter: 2007Q4

REPORT INFORMATION
  Report Type: 
  Country: None (occurrence: None)
  Receive Date: 20071213
  Receipt Date: 20070716
  Transmission Date: 20080405
  Serious: No
  Sender: FDA-Public Use
  Company Number: US-AMGEN-KDL230432

PATIENT
  Sex: Male

DRUGS (1)
  1. ENBREL [Suspect]
     Indication: PSORIASIS
     Route: 058
     Dates: start: 20070604

REACTIONS (5)
  - ABDOMINAL PAIN UPPER [None]
  - FATIGUE [None]
  - HEADACHE [None]
  - NAUSEA [None]
  - SOMNOLENCE [None]
